FAERS Safety Report 17576076 (Version 1)
Quarter: 2020Q1

REPORT INFORMATION
  Report Type: Spontaneous
  Country: PL (occurrence: PL)
  Receive Date: 20200324
  Receipt Date: 20200324
  Transmission Date: 20200409
  Serious: Yes (Death, Other)
  Sender: FDA-Public Use
  Company Number: PL-JNJFOC-20200330658

PATIENT
  Age: 69 Year
  Sex: Female

DRUGS (2)
  1. TRAMADOL HYDROCHLORIDE. [Suspect]
     Active Substance: TRAMADOL HYDROCHLORIDE
     Indication: SPINAL PAIN
     Dosage: UNK
     Route: 048
     Dates: start: 20200112, end: 20200112
  2. ENCORTON [PREDNISONE ACETATE] [Suspect]
     Active Substance: PREDNISONE ACETATE
     Indication: SPINAL PAIN
     Dosage: UNK
     Route: 048
     Dates: end: 20200112

REACTIONS (8)
  - Gastrointestinal haemorrhage [Fatal]
  - Gastrointestinal inflammation [Fatal]
  - Cardiac arrest [Fatal]
  - Diarrhoea [Fatal]
  - Chemical peritonitis [Fatal]
  - Shock [Fatal]
  - Hallucination [Fatal]
  - Pancreatitis acute [Fatal]

NARRATIVE: CASE EVENT DATE: 20200112
